FAERS Safety Report 8874713 (Version 2)
Quarter: 2013Q2

REPORT INFORMATION
  Report Type: Spontaneous
  Country: PT (occurrence: PT)
  Receive Date: 20121031
  Receipt Date: 20130603
  Transmission Date: 20140414
  Serious: Yes (Death, Hospitalization)
  Sender: FDA-Public Use
  Company Number: PT-B.I. PHARMACEUTICALS,INC./RIDGEFIELD-2012-EU-05389PO

PATIENT
  Sex: Male

DRUGS (1)
  1. NON-BI DRUG [Suspect]
     Indication: ATRIAL FIBRILLATION

REACTIONS (5)
  - Ischaemic stroke [Fatal]
  - Haemorrhage intracranial [Unknown]
  - Periorbital haematoma [Unknown]
  - Somnolence [Unknown]
  - Fall [Unknown]
